FAERS Safety Report 8739740 (Version 2)
Quarter: 2013Q4

REPORT INFORMATION
  Report Type: Spontaneous
  Country: US (occurrence: US)
  Receive Date: 20120823
  Receipt Date: 20131101
  Transmission Date: 20140711
  Serious: No
  Sender: FDA-Public Use
  Company Number: US-009507513-1208USA007619

PATIENT
  Age: 69 Year
  Sex: Female

DRUGS (1)
  1. COSOPT [Suspect]
     Dosage: UNK
     Route: 047
     Dates: start: 20120731

REACTIONS (1)
  - Incorrect product storage [Unknown]
